FAERS Safety Report 14038139 (Version 1)
Quarter: 2017Q4

REPORT INFORMATION
  Report Type: Spontaneous
  Country: IT (occurrence: IT)
  Receive Date: 20171004
  Receipt Date: 20171004
  Transmission Date: 20180321
  Serious: Yes (Hospitalization, Other)
  Sender: FDA-Public Use
  Company Number: IT-WEST-WARD PHARMACEUTICALS CORP.-IT-H14001-17-03758

PATIENT
  Age: 74 Year
  Sex: Male

DRUGS (4)
  1. VANCOMYCIN [Suspect]
     Active Substance: VANCOMYCIN
     Indication: INFECTION
     Route: 042
     Dates: start: 20160916, end: 20160926
  2. XARELTO [Concomitant]
     Active Substance: RIVAROXABAN
     Indication: ATRIAL FIBRILLATION
     Route: 048
     Dates: start: 20140626, end: 20161007
  3. ATENOLOLO EG [Concomitant]
     Active Substance: ATENOLOL
     Indication: PRODUCT USED FOR UNKNOWN INDICATION
     Route: 048
     Dates: start: 20121112, end: 20161007
  4. UNIPRILDIUR [Suspect]
     Active Substance: HYDROCHLOROTHIAZIDE\RAMIPRIL
     Indication: HYPERTENSION
     Route: 048

REACTIONS (2)
  - Acute kidney injury [Recovering/Resolving]
  - Drug interaction [Unknown]

NARRATIVE: CASE EVENT DATE: 20161007
